FAERS Safety Report 7878005-8 (Version None)
Quarter: 2011Q4

REPORT INFORMATION
  Report Type: 
  Country: None (occurrence: None)
  Receive Date: 20111031
  Receipt Date: 20111020
  Transmission Date: 20120403
  Serious: Yes (Other)
  Sender: FDA-Public Use
  Company Number: US-RB-032482-11

PATIENT
  Age: 55 Year
  Sex: Male

DRUGS (4)
  1. XANAX [Concomitant]
     Indication: ANXIETY
     Dosage: DOSING DETAILS UNKNOWN
     Route: 048
  2. LUVOX [Concomitant]
     Indication: DEPRESSION
     Dosage: UNKNOWN
     Route: 065
  3. SUBOXONE [Suspect]
     Indication: DRUG DEPENDENCE
     Route: 060
     Dates: start: 20110913, end: 20111001
  4. FLEXERIL [Concomitant]
     Indication: BACK PAIN
     Dosage: UNKNOWN
     Route: 065

REACTIONS (6)
  - EUPHORIC MOOD [None]
  - ACUTE PSYCHOSIS [None]
  - CONFUSIONAL STATE [None]
  - OFF LABEL USE [None]
  - AMNESIA [None]
  - UNDERDOSE [None]
